FAERS Safety Report 8925030 (Version 1)
Quarter: 2012Q4

REPORT INFORMATION
  Report Type: Report from Study
  Country: US (occurrence: US)
  Receive Date: 20121126
  Receipt Date: 20121126
  Transmission Date: 20130627
  Serious: Yes (Other)
  Sender: FDA-Public Use
  Company Number: US-ROCHE-1157466

PATIENT
  Age: 60 Year
  Sex: Female
  Weight: 89.3 kg

DRUGS (15)
  1. CAPECITABINE [Suspect]
     Indication: BREAST CANCER METASTATIC
     Dosage: Day1 and Day8 of 21-day cycle
     Route: 048
     Dates: start: 20120302, end: 20121012
  2. ATIVAN [Concomitant]
  3. LASIX [Concomitant]
  4. METOPROLOL SUCCINATE [Concomitant]
  5. PREDNISONE [Concomitant]
  6. OMEPRAZOLE [Concomitant]
  7. NEOSPORIN [Concomitant]
  8. ZYRTEC [Concomitant]
  9. ZOFRAN [Concomitant]
  10. XGEVA [Concomitant]
  11. CALTRATE WITH VITAMIN D [Concomitant]
  12. ALEVE [Concomitant]
  13. MAGNESIUM CHLORIDE [Concomitant]
  14. ASCORBIC ACID [Concomitant]
  15. KLOR-CON M20 [Concomitant]

REACTIONS (1)
  - Haemangioma [Recovered/Resolved]
